FAERS Safety Report 5568114-0 (Version None)
Quarter: 2007Q4

REPORT INFORMATION
  Report Type: 
  Country: None (occurrence: None)
  Receive Date: 20071220
  Receipt Date: 20071212
  Transmission Date: 20080405
  Serious: Yes (Other)
  Sender: FDA-Public Use
  Company Number: US-TYCO HEALTHCARE/MALLINCKRODT-T200701570

PATIENT

DRUGS (11)
  1. OPTIMARK [Suspect]
     Dosage: UNK, SINGLE
     Dates: start: 20000101, end: 20000101
  2. OPTIMARK [Suspect]
     Dosage: UNK, SINGLE
     Dates: start: 20011201, end: 20011201
  3. OPTIMARK [Suspect]
     Dosage: UNK, SINGLE
     Dates: start: 20020101, end: 20020101
  4. OPTIMARK [Suspect]
     Dosage: UNK, SINGLE
     Dates: start: 20020114, end: 20020114
  5. OPTIMARK [Suspect]
     Dosage: UNK, SINGLE
     Dates: start: 20021101, end: 20021101
  6. OMNISCAN [Suspect]
     Dosage: UNK, SINGLE
     Dates: start: 20030326, end: 20030326
  7. OMNISCAN [Suspect]
     Dosage: UNK, SINGLE
     Dates: start: 20030404, end: 20030404
  8. OMNISCAN [Suspect]
     Dosage: UNK, SINGLE
     Dates: start: 20030616
  9. MAGNEVIST [Suspect]
     Dosage: UNK, SINGLE
     Dates: start: 20031125, end: 20031125
  10. MAGNEVIST [Suspect]
     Dosage: UNK, SINGLE
     Dates: start: 20030101, end: 20030101
  11. MULTIHANCE [Suspect]
     Dosage: UNK, SINGLE
     Dates: start: 20051111, end: 20051111

REACTIONS (1)
  - NEPHROGENIC SYSTEMIC FIBROSIS [None]
